FAERS Safety Report 8291563-7 (Version None)
Quarter: 2012Q2

REPORT INFORMATION
  Report Type: 
  Country: None (occurrence: None)
  Receive Date: 20120417
  Receipt Date: 20120406
  Transmission Date: 20120825
  Serious: Yes (Other)
  Sender: FDA-Public Use
  Company Number: US-ELI_LILLY_AND_COMPANY-US201204003574

PATIENT
  Age: 77 Year
  Sex: Male

DRUGS (3)
  1. HUMULIN N [Suspect]
     Indication: TYPE 2 DIABETES MELLITUS
     Dosage: 65 U, EACH MORNING
  2. HUMULIN R [Suspect]
     Indication: TYPE 2 DIABETES MELLITUS
     Dosage: 10 U, QD
  3. HUMULIN N [Suspect]
     Dosage: 30 U, EACH EVENING

REACTIONS (3)
  - RETINAL DISORDER [None]
  - EYE DISORDER [None]
  - EYE HAEMORRHAGE [None]
